FAERS Safety Report 9738616 (Version 1)
Quarter: 2013Q4

REPORT INFORMATION
  Report Type: Spontaneous
  Country: US (occurrence: US)
  Receive Date: 20131209
  Receipt Date: 20131209
  Transmission Date: 20140711
  Serious: No
  Sender: FDA-Public Use
  Company Number: US-BIOGENIDEC-2013BI115241

PATIENT
  Age: 57 Year
  Sex: Female

DRUGS (9)
  1. TYSABRI [Suspect]
     Indication: MULTIPLE SCLEROSIS
     Route: 042
     Dates: start: 20100409, end: 20120821
  2. NATURAL DIURETIC [Concomitant]
     Indication: GENERAL SYMPTOM
     Route: 048
  3. VITAMIN D3 [Concomitant]
     Route: 048
  4. BENADRYL [Concomitant]
     Route: 048
  5. ESCATALAPRAM [Concomitant]
     Route: 048
  6. VITAMIN B COMPLEX [Concomitant]
     Route: 048
  7. NEURONTIN [Concomitant]
     Route: 048
  8. VICODIN [Concomitant]
     Route: 048
  9. NEUVIGIL [Concomitant]
     Route: 048

REACTIONS (4)
  - Pain [Not Recovered/Not Resolved]
  - Hypoaesthesia [Not Recovered/Not Resolved]
  - Paraesthesia [Not Recovered/Not Resolved]
  - Memory impairment [Not Recovered/Not Resolved]
